FAERS Safety Report 25911703 (Version 2)
Quarter: 2025Q4

REPORT INFORMATION
  Report Type: Spontaneous
  Country: US (occurrence: US)
  Receive Date: 20251013
  Receipt Date: 20251112
  Transmission Date: 20260117
  Serious: Yes (Life-Threatening, Hospitalization)
  Sender: MERCK SHARP & DOHME LLC
  Company Number: US-009507513-2336605

PATIENT
  Sex: Male
  Weight: 70.307 kg

DRUGS (2)
  1. BRIDION [Suspect]
     Active Substance: SUGAMMADEX SODIUM
     Indication: Neuromuscular blockade reversal
     Dosage: 200 MG/ UNKNOWN FREQUENCY
     Dates: start: 202510
  2. ROCURONIUM BROMIDE [Suspect]
     Active Substance: ROCURONIUM BROMIDE
     Dosage: 30 MG/ FREQUENCY UNKNOWN
     Dates: start: 20250923

REACTIONS (5)
  - Bradycardia [Recovered/Resolved]
  - Blood urea increased [Unknown]
  - Liver function test increased [Unknown]
  - Cardiac arrest [Recovered/Resolved]
  - Blood creatinine increased [Unknown]

NARRATIVE: CASE EVENT DATE: 20250101
